FAERS Safety Report 17211399 (Version 5)
Quarter: 2021Q2

REPORT INFORMATION
  Report Type: Report from Study
  Country: KR (occurrence: KR)
  Receive Date: 20191228
  Receipt Date: 20210421
  Transmission Date: 20210716
  Serious: Yes (Hospitalization, Other)
  Sender: FDA-Public Use
  Company Number: NVSC2019KR022123

PATIENT
  Age: 68 Year
  Sex: Male
  Weight: 59 kg

DRUGS (36)
  1. TACROLIMUS. [Suspect]
     Active Substance: TACROLIMUS
     Dosage: 3 UNK
     Route: 048
     Dates: end: 20190813
  2. FEBUXOSTAT. [Concomitant]
     Active Substance: FEBUXOSTAT
     Dosage: 40 UNK
     Route: 048
     Dates: start: 20200116
  3. PREDNISOLONE. [Concomitant]
     Active Substance: PREDNISOLONE
     Indication: GOUT
     Dosage: 5 UNK
     Route: 048
     Dates: start: 20190817, end: 20191228
  4. INFLUENZA VACCINE [Concomitant]
     Active Substance: INFLUENZA VIRUS VACCINE
     Indication: PROPHYLAXIS
     Dosage: 1 UNK
     Route: 030
     Dates: start: 201910, end: 201910
  5. GODEX [Concomitant]
     Indication: PROPHYLAXIS
     Dosage: 2 UNK
     Route: 048
     Dates: start: 20200527, end: 20200729
  6. ASAPRIN [Concomitant]
     Active Substance: ASPIRIN
     Indication: THROMBOSIS PROPHYLAXIS
     Dosage: 100 UNK
     Route: 048
     Dates: start: 20170815
  7. BROMHEXINE [Concomitant]
     Active Substance: BROMHEXINE
     Indication: NASOPHARYNGITIS
     Dosage: 8 UNK
     Route: 048
     Dates: start: 20180209, end: 20180216
  8. EVEROLIMUS. [Suspect]
     Active Substance: EVEROLIMUS
     Dosage: 1 UNK
     Route: 048
     Dates: end: 20200825
  9. COLCHICINE. [Concomitant]
     Active Substance: COLCHICINE
     Indication: GOUT
     Dosage: 0.6 UNK
     Route: 048
     Dates: start: 20190221
  10. FEBUXOSTAT. [Concomitant]
     Active Substance: FEBUXOSTAT
     Indication: GOUT
     Dosage: 40 UNK
     Route: 048
     Dates: start: 20170221, end: 20191228
  11. EVEROLIMUS. [Suspect]
     Active Substance: EVEROLIMUS
     Dosage: 1 UNK
     Route: 048
     Dates: start: 20170814
  12. TACROLIMUS. [Suspect]
     Active Substance: TACROLIMUS
     Dosage: 3 UNK
     Route: 048
     Dates: end: 20190813
  13. TACROLIMUS. [Suspect]
     Active Substance: TACROLIMUS
     Dosage: 1 UNK
     Route: 048
     Dates: start: 20200826
  14. ATORVASTATINE [Concomitant]
     Active Substance: ATORVASTATIN
     Indication: HYPERTENSION
     Dosage: 10 UNK
     Route: 048
     Dates: start: 20171106, end: 20180209
  15. IRBESARTAN. [Concomitant]
     Active Substance: IRBESARTAN
     Indication: HYPERTENSION
     Dosage: 150 UNK
     Route: 048
     Dates: start: 20170815
  16. EVEROLIMUS. [Suspect]
     Active Substance: EVEROLIMUS
     Indication: PROPHYLAXIS AGAINST TRANSPLANT REJECTION
     Dosage: 0.5 MG
     Route: 048
     Dates: start: 20150914
  17. TACROLIMUS. [Suspect]
     Active Substance: TACROLIMUS
     Dosage: 3 UNK
     Route: 048
     Dates: start: 20190424
  18. HYDRALAZINE [Concomitant]
     Active Substance: HYDRALAZINE HYDROCHLORIDE
     Indication: HYPERTENSION
     Dosage: 10 UNK
     Route: 042
     Dates: start: 20190129, end: 20190130
  19. HEPABIG [Concomitant]
     Indication: ANTIVIRAL PROPHYLAXIS
     Dosage: 10000 UNK
     Route: 042
     Dates: start: 20170815
  20. EVEROLIMUS. [Suspect]
     Active Substance: EVEROLIMUS
     Dosage: 1 UNK
     Route: 048
     Dates: start: 20190424
  21. EVEROLIMUS. [Suspect]
     Active Substance: EVEROLIMUS
     Dosage: 1 UNK
     Route: 048
     Dates: start: 20200826
  22. TACROLIMUS. [Suspect]
     Active Substance: TACROLIMUS
     Dosage: 3 UNK
     Route: 048
     Dates: start: 20170814, end: 20171106
  23. TACROLIMUS. [Suspect]
     Active Substance: TACROLIMUS
     Dosage: 3 UNK
     Route: 048
     Dates: start: 20181227, end: 20190423
  24. COLCHICINE. [Concomitant]
     Active Substance: COLCHICINE
     Dosage: 0.6 UNK
     Route: 048
     Dates: start: 20200116
  25. MEDILAC DS [Concomitant]
     Indication: GASTROINTESTINAL DISORDER PROPHYLAXIS
     Dosage: 1 UNK
     Route: 048
     Dates: start: 20190204, end: 20190424
  26. EVEROLIMUS. [Suspect]
     Active Substance: EVEROLIMUS
     Dosage: 1 UNK
     Route: 048
     Dates: end: 20190423
  27. TACROLIMUS. [Suspect]
     Active Substance: TACROLIMUS
     Dosage: 3.5 UNK
     Route: 048
     Dates: start: 20171107
  28. PANTOPRAZOLE [Concomitant]
     Active Substance: PANTOPRAZOLE
     Indication: GASTROINTESTINAL DISORDER PROPHYLAXIS
     Dosage: 20 UNK
     Route: 048
     Dates: start: 20170815, end: 20200527
  29. CHLORPHENIRAMINE. [Concomitant]
     Active Substance: CHLORPHENIRAMINE
     Indication: NASOPHARYNGITIS
     Dosage: 2 UNK
     Route: 048
     Dates: start: 20180209, end: 20180216
  30. TACROLIMUS. [Suspect]
     Active Substance: TACROLIMUS
     Indication: LIVER TRANSPLANT
     Dosage: 0.5 MG, BID
     Route: 048
     Dates: start: 20150821
  31. TACROLIMUS. [Suspect]
     Active Substance: TACROLIMUS
     Dosage: 3.5 UNK
     Route: 048
     Dates: end: 20181226
  32. TACROLIMUS. [Suspect]
     Active Substance: TACROLIMUS
     Dosage: 1 UNK
     Route: 048
     Dates: start: 20190814, end: 20190825
  33. FEROBA U [Concomitant]
     Active Substance: FERROUS SULFATE
     Indication: ANAEMIA PROPHYLAXIS
     Dosage: 256 UNK
     Route: 048
     Dates: start: 20170815, end: 20200527
  34. ARONAMIN C PLUS [Concomitant]
     Indication: ROUTINE HEALTH MAINTENANCE
     Dosage: 1 UNK
     Route: 048
     Dates: start: 20170815
  35. TENOFOVIR [Concomitant]
     Active Substance: TENOFOVIR
     Indication: ANTIVIRAL PROPHYLAXIS
     Dosage: 300 UNK
     Route: 048
     Dates: start: 20170815
  36. LEVODROPROPIZINE [Concomitant]
     Active Substance: LEVODROPROPIZINE
     Indication: NASOPHARYNGITIS
     Dosage: 60 UNK
     Route: 048
     Dates: start: 20180209, end: 20180216

REACTIONS (10)
  - Hyperkalaemia [Recovered/Resolved]
  - Nasopharyngitis [Recovered/Resolved]
  - Nasopharyngitis [Recovered/Resolved]
  - Acute kidney injury [Recovered/Resolved]
  - Diarrhoea [Recovered/Resolved]
  - Gastroenteritis [Recovered/Resolved]
  - Diarrhoea [Recovered/Resolved]
  - Nasopharyngitis [Recovered/Resolved]
  - Herpes zoster [Recovered/Resolved]
  - Pyrexia [Unknown]

NARRATIVE: CASE EVENT DATE: 20180908
